FAERS Safety Report 13678909 (Version 1)
Quarter: 2017Q2

REPORT INFORMATION
  Report Type: Spontaneous
  Country: GB (occurrence: GB)
  Receive Date: 20170622
  Receipt Date: 20170622
  Transmission Date: 20170830
  Serious: Yes (Other)
  Sender: FDA-Public Use
  Company Number: GB-JUBILANT CADISTA PHARMACEUTICALS-2017JUB00214

PATIENT
  Age: 25 Year
  Sex: Female

DRUGS (1)
  1. ITRACONAZOLE. [Suspect]
     Active Substance: ITRACONAZOLE
     Indication: SEVERE ASTHMA WITH FUNGAL SENSITISATION
     Dosage: UNK
     Route: 065
     Dates: start: 2003

REACTIONS (1)
  - Tendonitis [Recovered/Resolved]
